FAERS Safety Report 8285460-0 (Version None)
Quarter: 2012Q2

REPORT INFORMATION
  Report Type: 
  Country: None (occurrence: None)
  Receive Date: 20120413
  Receipt Date: 20111003
  Transmission Date: 20120825
  Serious: Yes (Other)
  Sender: FDA-Public Use
  Company Number: US-ASTRAZENECA-2009UW07838

PATIENT
  Age: 43 Year
  Sex: Female

DRUGS (2)
  1. NEXIUM [Suspect]
     Route: 048
  2. ZOMIG [Suspect]
     Route: 048

REACTIONS (6)
  - GASTRIC DISORDER [None]
  - DIARRHOEA [None]
  - DRUG DOSE OMISSION [None]
  - HYPERCHLORHYDRIA [None]
  - PANCREATITIS [None]
  - MALAISE [None]
